FAERS Safety Report 7217398-1 (Version None)
Quarter: 2010Q4

REPORT INFORMATION
  Report Type: 
  Country: None (occurrence: None)
  Receive Date: 20101126
  Receipt Date: 20101011
  Transmission Date: 20110411
  Serious: No
  Sender: FDA-Public Use
  Company Number: 316306

PATIENT
  Age: 67 Year
  Sex: Female
  Weight: 113.4 kg

DRUGS (3)
  1. VICTOZA [Suspect]
     Indication: TYPE 2 DIABETES MELLITUS
     Dosage: 1.8 MG, QD 8PM, SUBCUTANEOUS
     Route: 058
     Dates: start: 20100901
  2. METFORMIN HCL [Concomitant]
  3. WARFARIN (WARFARIN) [Concomitant]

REACTIONS (2)
  - CONTUSION [None]
  - INTERNATIONAL NORMALISED RATIO INCREASED [None]
